FAERS Safety Report 13881050 (Version 2)
Quarter: 2017Q4

REPORT INFORMATION
  Report Type: Report from Study
  Country: JP (occurrence: JP)
  Receive Date: 20170818
  Receipt Date: 20171207
  Transmission Date: 20180320
  Serious: Yes (Hospitalization, Other)
  Sender: FDA-Public Use
  Company Number: JP-AMGEN-JPNCT2017110508

PATIENT
  Age: 77 Year
  Sex: Female
  Weight: 59 kg

DRUGS (62)
  1. ROMIPLOSTIM [Suspect]
     Active Substance: ROMIPLOSTIM
     Dosage: 2 MUG/KG, UNK
     Route: 058
     Dates: start: 20130917, end: 20130917
  2. ROMIPLOSTIM [Suspect]
     Active Substance: ROMIPLOSTIM
     Dosage: 4 MUG/KG, UNK
     Route: 058
     Dates: start: 20140407, end: 20140407
  3. ROMIPLOSTIM [Suspect]
     Active Substance: ROMIPLOSTIM
     Dosage: 3 MUG/KG, QWK
     Route: 058
     Dates: start: 20140414, end: 20140428
  4. ROMIPLOSTIM [Suspect]
     Active Substance: ROMIPLOSTIM
     Dosage: 4 MUG/KG, UNK
     Route: 058
     Dates: start: 20140707, end: 20140707
  5. PREDONINE [Suspect]
     Active Substance: PREDNISOLONE
     Dosage: 10 MG, UNK
     Route: 048
     Dates: start: 20131021, end: 20131025
  6. PREDONINE [Suspect]
     Active Substance: PREDNISOLONE
     Dosage: 25 MG, UNK
     Route: 048
     Dates: start: 20130720, end: 20130729
  7. PREDONINE [Suspect]
     Active Substance: PREDNISOLONE
     Dosage: 10 MG, UNK
     Route: 048
     Dates: start: 20130809, end: 20130813
  8. PREDONINE [Suspect]
     Active Substance: PREDNISOLONE
     Dosage: 10 MG, UNK
     Route: 048
     Dates: start: 20131118, end: 20131124
  9. ONEALFA [Concomitant]
     Active Substance: ALFACALCIDOL
     Indication: OSTEOPOROSIS
     Dosage: UNK
     Route: 048
  10. ROMIPLOSTIM [Suspect]
     Active Substance: ROMIPLOSTIM
     Dosage: 2 MUG/KG, UNK
     Route: 058
     Dates: start: 20130730, end: 20130730
  11. PREDONINE [Suspect]
     Active Substance: PREDNISOLONE
     Dosage: 20 MG, UNK
     Route: 048
     Dates: start: 20130713, end: 20130719
  12. PREDONINE [Suspect]
     Active Substance: PREDNISOLONE
     Dosage: 20 MG, UNK
     Route: 048
     Dates: start: 20130730, end: 20130803
  13. PREDONINE [Suspect]
     Active Substance: PREDNISOLONE
     Dosage: 25 MG, UNK
     Route: 048
     Dates: start: 20131026, end: 20131029
  14. PREDONINE [Suspect]
     Active Substance: PREDNISOLONE
     Dosage: 5 MG, UNK
     Route: 048
     Dates: start: 20140106, end: 20140121
  15. PREDONINE [Suspect]
     Active Substance: PREDNISOLONE
     Dosage: 3 MG, UNK
     Route: 048
     Dates: start: 20140210, end: 20140216
  16. PREDONINE [Suspect]
     Active Substance: PREDNISOLONE
     Dosage: 1 MG, UNK
     Route: 048
     Dates: start: 20140224, end: 20140302
  17. ROMIPLOSTIM [Suspect]
     Active Substance: ROMIPLOSTIM
     Dosage: 2 MUG/KG, QWK
     Route: 058
     Dates: start: 20131015, end: 20131021
  18. ROMIPLOSTIM [Suspect]
     Active Substance: ROMIPLOSTIM
     Dosage: 3 MUG/KG, QWK
     Route: 058
     Dates: start: 20131028, end: 20131125
  19. ROMIPLOSTIM [Suspect]
     Active Substance: ROMIPLOSTIM
     Dosage: 4 MUG/KG, QWK
     Route: 058
     Dates: start: 20140120, end: 20140303
  20. ROMIPLOSTIM [Suspect]
     Active Substance: ROMIPLOSTIM
     Dosage: 3 MUG/KG, UNK
     Route: 058
     Dates: start: 20140331, end: 20140331
  21. ROMIPLOSTIM [Suspect]
     Active Substance: ROMIPLOSTIM
     Dosage: 4 MUG/KG, QWK
     Route: 058
     Dates: start: 20140519, end: 20140526
  22. ROMIPLOSTIM [Suspect]
     Active Substance: ROMIPLOSTIM
     Dosage: 3 MUG/KG, UNK
     Route: 058
     Dates: start: 20140602, end: 20140602
  23. PREDONINE [Suspect]
     Active Substance: PREDNISOLONE
     Dosage: 15 MG, UNK
     Route: 048
     Dates: start: 20131007, end: 20131014
  24. PREDONINE [Suspect]
     Active Substance: PREDNISOLONE
     Dosage: 20 MG, UNK
     Route: 048
     Dates: start: 20131108, end: 20131111
  25. PREDONINE [Suspect]
     Active Substance: PREDNISOLONE
     Dosage: 6 MG, UNK
     Route: 048
     Dates: start: 20131224, end: 20140105
  26. PREDONINE [Suspect]
     Active Substance: PREDNISOLONE
     Dosage: 5 MG, UNK
     Route: 048
     Dates: start: 20140127, end: 20140202
  27. PREDONINE [Suspect]
     Active Substance: PREDNISOLONE
     Dosage: 2 MG, UNK
     Route: 048
     Dates: start: 20140217, end: 20140223
  28. MUCOSTA [Concomitant]
     Active Substance: REBAMIPIDE
     Indication: CHRONIC GASTRITIS
     Dosage: UNK
     Route: 048
  29. ROMIPLOSTIM [Suspect]
     Active Substance: ROMIPLOSTIM
     Dosage: 3 MUG/KG, UNK
     Route: 058
     Dates: start: 20131227, end: 20131227
  30. ROMIPLOSTIM [Suspect]
     Active Substance: ROMIPLOSTIM
     Dosage: 4 MUG/KG, UNK
     Route: 058
     Dates: start: 20140502, end: 20140502
  31. ROMIPLOSTIM [Suspect]
     Active Substance: ROMIPLOSTIM
     Dosage: 4 MUG/KG, UNK
     Route: 058
     Dates: start: 20140609, end: 20140609
  32. ROMIPLOSTIM [Suspect]
     Active Substance: ROMIPLOSTIM
     Dosage: 4 MUG/KG, UNK
     Route: 058
     Dates: start: 20140722
  33. PREDONINE [Suspect]
     Active Substance: PREDNISOLONE
     Dosage: 25 MG, UNK
     Route: 048
     Dates: start: 20130920, end: 20130930
  34. PREDONINE [Suspect]
     Active Substance: PREDNISOLONE
     Dosage: 25 MG, UNK
     Route: 048
     Dates: start: 20131030, end: 20131107
  35. PREDONINE [Suspect]
     Active Substance: PREDNISOLONE
     Dosage: 15 MG, UNK
     Route: 048
     Dates: start: 20131112, end: 20131117
  36. LENDORMIN [Concomitant]
     Active Substance: BROTIZOLAM
     Indication: INSOMNIA
     Dosage: UNK
     Route: 048
  37. ROMIPLOSTIM [Suspect]
     Active Substance: ROMIPLOSTIM
     Dosage: 3 MUG/KG, QWK
     Route: 058
     Dates: start: 20130806, end: 20130826
  38. ROMIPLOSTIM [Suspect]
     Active Substance: ROMIPLOSTIM
     Dosage: 3 MUG/KG, UNK
     Route: 058
     Dates: start: 20140512, end: 20140512
  39. ROMIPLOSTIM [Suspect]
     Active Substance: ROMIPLOSTIM
     Dosage: 4 MUG/KG, UNK
     Route: 058
     Dates: start: 20140623, end: 20140623
  40. PREDONINE [Suspect]
     Active Substance: PREDNISOLONE
     Indication: IMMUNE THROMBOCYTOPENIC PURPURA
     Dosage: 20 MG, UNK
     Route: 048
     Dates: start: 20130709, end: 20130712
  41. PREDONINE [Suspect]
     Active Substance: PREDNISOLONE
     Dosage: 15 MG, UNK
     Route: 048
     Dates: start: 20130804, end: 20130808
  42. PREDONINE [Suspect]
     Active Substance: PREDNISOLONE
     Dosage: 10 MG, UNK
     Route: 048
     Dates: start: 20131015, end: 20131020
  43. PREDONINE [Suspect]
     Active Substance: PREDNISOLONE
     Dosage: 9 MG, UNK
     Route: 048
     Dates: start: 20131125, end: 20131208
  44. PREDONINE [Suspect]
     Active Substance: PREDNISOLONE
     Dosage: 8 MG, UNK
     Route: 048
     Dates: start: 20131209, end: 20131215
  45. PREDONINE [Suspect]
     Active Substance: PREDNISOLONE
     Dosage: 7 MG, UNK
     Route: 048
     Dates: start: 20131216, end: 20131223
  46. PREDONINE [Suspect]
     Active Substance: PREDNISOLONE
     Dosage: 4 MG, UNK
     Route: 048
     Dates: start: 20140203, end: 20140209
  47. MAGLAX [Concomitant]
     Active Substance: MAGNESIUM OXIDE
     Indication: PROPHYLAXIS
     Dosage: UNK
     Route: 048
  48. ROMIPLOSTIM [Suspect]
     Active Substance: ROMIPLOSTIM
     Dosage: 1 MUG/KG, QWK
     Route: 058
     Dates: start: 20130902, end: 20130909
  49. ROMIPLOSTIM [Suspect]
     Active Substance: ROMIPLOSTIM
     Dosage: 4 MUG/KG, QWK
     Route: 058
     Dates: start: 20131202, end: 20131209
  50. ROMIPLOSTIM [Suspect]
     Active Substance: ROMIPLOSTIM
     Dosage: 5 MUG/KG, UNK
     Route: 058
     Dates: start: 20140310, end: 20140310
  51. ROMIPLOSTIM [Suspect]
     Active Substance: ROMIPLOSTIM
     Dosage: 3 MUG/KG, UNK
     Route: 058
     Dates: start: 20140630, end: 20140630
  52. PREDONINE [Suspect]
     Active Substance: PREDNISOLONE
     Dosage: 20 MG, UNK
     Route: 048
     Dates: start: 20131001, end: 20131006
  53. ROMIPLOSTIM [Suspect]
     Active Substance: ROMIPLOSTIM
     Indication: PRODUCT USED FOR UNKNOWN INDICATION
     Dosage: 1 MUG/KG, UNK
     Route: 058
     Dates: start: 20130723, end: 20130723
  54. ROMIPLOSTIM [Suspect]
     Active Substance: ROMIPLOSTIM
     Dosage: 3 MUG/KG, QWK
     Route: 058
     Dates: start: 20130924, end: 20131007
  55. ROMIPLOSTIM [Suspect]
     Active Substance: ROMIPLOSTIM
     Dosage: 3 MUG/KG, QWK
     Route: 058
     Dates: start: 20131216, end: 20131224
  56. ROMIPLOSTIM [Suspect]
     Active Substance: ROMIPLOSTIM
     Dosage: 3 MUG/KG, QWK
     Route: 058
     Dates: start: 20140106, end: 20140114
  57. ROMIPLOSTIM [Suspect]
     Active Substance: ROMIPLOSTIM
     Dosage: 4 MUG/KG, QWK
     Route: 058
     Dates: start: 20140317, end: 20140324
  58. ROMIPLOSTIM [Suspect]
     Active Substance: ROMIPLOSTIM
     Dosage: 3 MUG/KG, UNK
     Route: 058
     Dates: start: 20140616, end: 20140616
  59. ROMIPLOSTIM [Suspect]
     Active Substance: ROMIPLOSTIM
     Dosage: 3 MUG/KG, UNK
     Route: 058
     Dates: start: 20140714, end: 20140714
  60. PREDONINE [Suspect]
     Active Substance: PREDNISOLONE
     Dosage: 5 MG, UNK
     Route: 048
     Dates: start: 20130814, end: 20130919
  61. TAKEPRON [Concomitant]
     Active Substance: LANSOPRAZOLE
     Indication: GASTRIC ULCER
     Dosage: UNK
     Route: 048
  62. BENET [Concomitant]
     Active Substance: RISEDRONATE SODIUM
     Indication: OSTEOPOROSIS
     Dosage: UNK
     Route: 048

REACTIONS (5)
  - White blood cell count increased [Recovering/Resolving]
  - Depression [Not Recovered/Not Resolved]
  - Decreased appetite [Not Recovered/Not Resolved]
  - Spinal compression fracture [Recovering/Resolving]
  - Vertigo [Recovered/Resolved]

NARRATIVE: CASE EVENT DATE: 20130927
